FAERS Safety Report 9499468 (Version 1)
Quarter: 2013Q3

REPORT INFORMATION
  Report Type: Spontaneous
  Country: US (occurrence: None)
  Receive Date: 20130903
  Receipt Date: 20130903
  Transmission Date: 20140515
  Serious: Yes (Life-Threatening, Hospitalization)
  Sender: FDA-Public Use
  Company Number: None

PATIENT
  Age: 81 None
  Sex: Male
  Weight: 54.6 kg

DRUGS (2)
  1. CLOPIDOGREL [Suspect]
     Indication: CARDIOVASCULAR EVENT PROPHYLAXIS
     Route: 048
     Dates: start: 20091119, end: 20130719
  2. ASPIRIN [Suspect]
     Route: 048
     Dates: start: 20060710, end: 20130719

REACTIONS (2)
  - Subdural haematoma [None]
  - Fall [None]
